FAERS Safety Report 8575043-7 (Version None)
Quarter: 2012Q2

REPORT INFORMATION
  Report Type: 
  Country: None (occurrence: None)
  Receive Date: 20120423
  Receipt Date: 20100106
  Transmission Date: 20120825
  Serious: Yes (Hospitalization)
  Sender: FDA-Public Use
  Company Number: PHEH2007US10804

PATIENT
  Age: 39 Year
  Sex: Female
  Weight: 65.8 kg

DRUGS (1)
  1. EXJADE [Suspect]
     Indication: IRON OVERLOAD
     Dosage: 1500 MG, QD, ORAL, 1000 MG, BID, ORAL
     Route: 048
     Dates: start: 20070321

REACTIONS (1)
  - SICKLE CELL ANAEMIA WITH CRISIS [None]
